FAERS Safety Report 20603627 (Version 1)
Quarter: 2022Q1

REPORT INFORMATION
  Report Type: Spontaneous
  Country: CN (occurrence: CN)
  Receive Date: 20220316
  Receipt Date: 20220316
  Transmission Date: 20220423
  Serious: Yes (Other)
  Sender: FDA-Public Use
  Company Number: CN-NOVARTISPH-NVSC2022CN058760

PATIENT

DRUGS (11)
  1. TOPOTECAN [Suspect]
     Active Substance: TOPOTECAN HYDROCHLORIDE
     Indication: Neuroblastoma
     Dosage: 1.2 MG/M2 (D1-5), CYCLIC
     Route: 042
  2. CYCLOPHOSPHAMIDE [Suspect]
     Active Substance: CYCLOPHOSPHAMIDE
     Indication: Neuroblastoma
     Dosage: 400 MG/M2 (D1-5), CYCLIC
     Route: 042
  3. CYCLOPHOSPHAMIDE [Suspect]
     Active Substance: CYCLOPHOSPHAMIDE
     Dosage: 1200 MG/M (D1-2), CYCLIC
     Route: 042
  4. IRINOTECAN [Suspect]
     Active Substance: IRINOTECAN
     Indication: Neuroblastoma
     Dosage: 120 MG/M2 (D1-3), CYCLIC
     Route: 042
  5. CISPLATIN [Suspect]
     Active Substance: CISPLATIN
     Indication: Neuroblastoma
     Dosage: 50 MG/M2 (D1-4), CYCLIC
     Route: 042
  6. CARBOPLATIN [Suspect]
     Active Substance: CARBOPLATIN
     Indication: Neuroblastoma
     Dosage: 560 MG/M2 (D1), CYCLIC
     Route: 042
  7. ETOPOSIDE [Suspect]
     Active Substance: ETOPOSIDE
     Indication: Neuroblastoma
     Dosage: 200 MG/M2 (D1-3), CYCLIC
     Route: 042
  8. MESNA [Suspect]
     Active Substance: MESNA
     Indication: Neuroblastoma
     Dosage: PUSH (D1-2) (0, 4, AND 8 H AFTER CTX INJECTION)
     Route: 065
  9. DOXORUBICIN [Suspect]
     Active Substance: DOXORUBICIN
     Indication: Neuroblastoma
     Dosage: 25 MG/M2 (D1-3), CYCLIC
     Route: 042
  10. DOXORUBICIN HYDROCHLORIDE [Suspect]
     Active Substance: DOXORUBICIN HYDROCHLORIDE
     Indication: Neuroblastoma
     Dosage: 20 MG/M2, (D1-3) CYCLIC
     Route: 042
  11. VINCRISTINE [Suspect]
     Active Substance: VINCRISTINE
     Indication: Neuroblastoma
     Dosage: PUSH, CYCLIC (D1-3)
     Route: 065

REACTIONS (4)
  - Acute myeloid leukaemia [Unknown]
  - Second primary malignancy [Unknown]
  - Product use issue [Unknown]
  - Product use in unapproved indication [Unknown]
